FAERS Safety Report 8514589-4 (Version None)
Quarter: 2012Q3

REPORT INFORMATION
  Report Type: 
  Country: None (occurrence: None)
  Receive Date: 20120717
  Receipt Date: 20120705
  Transmission Date: 20120928
  Serious: Yes (Hospitalization, Other)
  Sender: FDA-Public Use
  Company Number: IN-PERRIGO-12IN005816

PATIENT
  Age: 17 Year
  Sex: Male

DRUGS (3)
  1. IBUPROFEN [Suspect]
     Indication: PYREXIA
     Dosage: UNK, UNK
     Route: 048
  2. IBUPROFEN [Suspect]
     Indication: PAIN
  3. CHLOROQUINE PHOSPHATE [Concomitant]
     Indication: PRODUCT USED FOR UNKNOWN INDICATION
     Dosage: UNK, UNK
     Route: 048

REACTIONS (10)
  - SKIN EXFOLIATION [None]
  - TACHYCARDIA [None]
  - MALAISE [None]
  - PYREXIA [None]
  - ORAL MUCOSA EROSION [None]
  - STEVENS-JOHNSON SYNDROME [None]
  - ERYTHEMA MULTIFORME [None]
  - PURPURA [None]
  - CONJUNCTIVAL EROSION [None]
  - POST INFLAMMATORY PIGMENTATION CHANGE [None]
